FAERS Safety Report 5889208-6 (Version None)
Quarter: 2008Q3

REPORT INFORMATION
  Report Type: 
  Country: None (occurrence: None)
  Receive Date: 20080919
  Receipt Date: 20080910
  Transmission Date: 20090109
  Serious: Yes (Other)
  Sender: FDA-Public Use
  Company Number: GB-AMGEN-US305382

PATIENT
  Sex: Male
  Weight: 94.2 kg

DRUGS (2)
  1. ENBREL [Suspect]
     Indication: DRUG USE FOR UNKNOWN INDICATION
     Dosage: 50MG, FREQUENCY UNKNOWN
     Route: 058
     Dates: start: 20080718, end: 20080808
  2. MELOXICAM [Concomitant]
     Indication: ANKYLOSING SPONDYLITIS
     Dosage: 15MG, FREQUENCY UNKNOWN
     Route: 048
     Dates: start: 20060830

REACTIONS (2)
  - AGGRESSION [None]
  - SUICIDAL IDEATION [None]
